FAERS Safety Report 22650852 (Version 1)
Quarter: 2023Q2

REPORT INFORMATION
  Report Type: Other
  Country: PL (occurrence: None)
  Receive Date: 20230628
  Receipt Date: 20230628
  Transmission Date: 20230721
  Serious: Yes (Other)
  Sender: FDA-Public Use
  Company Number: PL-ROCHE-3375346

PATIENT

DRUGS (16)
  1. RIBAVIRIN [Suspect]
     Active Substance: RIBAVIRIN
     Indication: Chronic hepatitis C
     Route: 065
  2. PEGINTERFERON ALFA-2A [Suspect]
     Active Substance: PEGINTERFERON ALFA-2A
     Indication: Chronic hepatitis C
     Route: 065
  3. OMBITASVIR\PARITAPREVIR\RITONAVIR [Suspect]
     Active Substance: OMBITASVIR\PARITAPREVIR\RITONAVIR
     Indication: Chronic hepatitis C
     Route: 065
  4. DASABUVIR [Suspect]
     Active Substance: DASABUVIR
     Indication: Chronic hepatitis C
     Route: 065
  5. SOFOSBUVIR [Suspect]
     Active Substance: SOFOSBUVIR
     Indication: Chronic hepatitis C
     Route: 065
  6. DACLATASVIR [Suspect]
     Active Substance: DACLATASVIR
     Indication: Chronic hepatitis C
     Route: 065
  7. ASUNAPREVIR [Suspect]
     Active Substance: ASUNAPREVIR
     Indication: Chronic hepatitis C
     Route: 065
  8. LEDIPASVIR\SOFOSBUVIR [Suspect]
     Active Substance: LEDIPASVIR\SOFOSBUVIR
     Indication: Chronic hepatitis C
     Route: 065
  9. VELPATASVIR [Suspect]
     Active Substance: VELPATASVIR
     Indication: Chronic hepatitis C
     Route: 065
  10. TELAPREVIR [Suspect]
     Active Substance: TELAPREVIR
     Indication: Chronic hepatitis C
     Route: 065
  11. SIMEPREVIR [Suspect]
     Active Substance: SIMEPREVIR
     Indication: Chronic hepatitis C
     Route: 065
  12. GRAZOPREVIR [Suspect]
     Active Substance: GRAZOPREVIR
     Indication: Chronic hepatitis C
     Route: 065
  13. ELBASVIR [Suspect]
     Active Substance: ELBASVIR
     Indication: Chronic hepatitis C
     Route: 065
  14. GLECAPREVIR [Suspect]
     Active Substance: GLECAPREVIR
     Indication: Chronic hepatitis C
     Route: 065
  15. PIBRENTASVIR [Suspect]
     Active Substance: PIBRENTASVIR
     Indication: Chronic hepatitis C
     Route: 065
  16. VOXILAPREVIR [Suspect]
     Active Substance: VOXILAPREVIR
     Indication: Chronic hepatitis C
     Route: 065

REACTIONS (19)
  - Hepatic failure [Unknown]
  - Hepatic encephalopathy [Unknown]
  - Gastrointestinal haemorrhage [Unknown]
  - Hyperbilirubinaemia [Unknown]
  - Cardiovascular disorder [Unknown]
  - Skin disorder [Unknown]
  - Alanine aminotransferase increased [Unknown]
  - Asthenia [Unknown]
  - Fatigue [Unknown]
  - Anaemia [Unknown]
  - Nausea [Unknown]
  - Headache [Unknown]
  - Sleep disorder [Unknown]
  - Abdominal pain [Unknown]
  - Myalgia [Unknown]
  - Arthralgia [Unknown]
  - Pruritus [Unknown]
  - Skin lesion [Unknown]
  - Ascites [Unknown]
